FAERS Safety Report 7669220-7 (Version None)
Quarter: 2011Q3

REPORT INFORMATION
  Report Type: 
  Country: None (occurrence: None)
  Receive Date: 20110808
  Receipt Date: 20110725
  Transmission Date: 20111222
  Serious: Yes (Hospitalization)
  Sender: FDA-Public Use
  Company Number: PHHY2011US69516

PATIENT
  Sex: Female

DRUGS (9)
  1. DIOVAN [Suspect]
     Dosage: UNK ?, UNK
     Route: 065
     Dates: start: 20090101, end: 20110101
  2. FLUTICASONE PROPIONATE [Concomitant]
     Route: 065
  3. MICARDIS [Suspect]
     Dosage: 40 MG, DAILY
     Route: 065
     Dates: start: 20091007
  4. XOPENEX [Concomitant]
     Route: 065
  5. LOSARTAN POTASSIUM AND HYDROCHLOROTHIAZIDE [Suspect]
     Dosage: 1 DF(110/12.5 MG), DAILY
     Route: 065
     Dates: start: 20110609
  6. ASMANEX TWISTHALER [Concomitant]
     Dosage: 220 UG, UNK
  7. QVAR 40 [Concomitant]
     Route: 065
  8. LISINOPRIL [Suspect]
     Dosage: 1 DF (DOSIS UNK), DALILY
     Route: 065
     Dates: start: 20080101, end: 20090101
  9. PROAIR (SALBUTAMOL SULFATE) [Concomitant]
     Route: 065

REACTIONS (3)
  - ASTHMA [None]
  - BLOOD PRESSURE INCREASED [None]
  - COUGH [None]
